FAERS Safety Report 6111867-3 (Version None)
Quarter: 2009Q1

REPORT INFORMATION
  Report Type: 
  Country: None (occurrence: None)
  Receive Date: 20090311
  Receipt Date: 20090311
  Transmission Date: 20090719
  Serious: Yes (Death, Hospitalization)
  Sender: FDA-Public Use
  Company Number: BE-ABBOTT-09P-013-0503373-00

PATIENT
  Sex: Female
  Weight: 47 kg

DRUGS (10)
  1. HUMIRA [Suspect]
     Indication: POLYARTHRITIS
     Route: 058
     Dates: start: 20080409, end: 20090108
  2. HUMIRA [Suspect]
     Indication: RHEUMATOID ARTHRITIS
  3. LEDERTREXATE [Concomitant]
     Indication: POLYARTHRITIS
     Dates: start: 20070726, end: 20090108
  4. LEDERTREXATE [Concomitant]
     Indication: RHEUMATOID ARTHRITIS
  5. GAMBARAN [Concomitant]
     Indication: POLYARTHRITIS
     Dates: start: 20080606, end: 20090108
  6. GAMBARAN [Concomitant]
     Indication: PAIN
  7. GAMBARAN [Concomitant]
     Indication: RHEUMATOID ARTHRITIS
  8. ALPRAZOLAM [Concomitant]
     Indication: STRESS
     Dates: start: 20080606, end: 20090108
  9. TRAMADOL HCL [Concomitant]
     Indication: PAIN
  10. MEDROL [Concomitant]
     Indication: DRUG USE FOR UNKNOWN INDICATION

REACTIONS (16)
  - ANXIETY [None]
  - COUGH [None]
  - DEPRESSION [None]
  - DISSEMINATED TUBERCULOSIS [None]
  - GENERAL PHYSICAL HEALTH DETERIORATION [None]
  - HEPATIC FAILURE [None]
  - INFLAMMATION [None]
  - INTERSTITIAL LUNG DISEASE [None]
  - LIVER FUNCTION TEST ABNORMAL [None]
  - MALAISE [None]
  - NIGHT SWEATS [None]
  - PNEUMONIA [None]
  - PSORIASIS [None]
  - PULMONARY TUBERCULOSIS [None]
  - PYREXIA [None]
  - WEIGHT DECREASED [None]
